FAERS Safety Report 16717968 (Version 2)
Quarter: 2019Q3

REPORT INFORMATION
  Report Type: Spontaneous
  Country: US (occurrence: US)
  Receive Date: 20190819
  Receipt Date: 20190826
  Transmission Date: 20191005
  Serious: Yes (Other)
  Sender: FDA-Public Use
  Company Number: PHHY2019US191095

PATIENT
  Sex: Female

DRUGS (3)
  1. METHYLPREDNISOLONE. [Suspect]
     Active Substance: METHYLPREDNISOLONE
     Indication: C3 GLOMERULOPATHY
     Dosage: 1 G, PULSE DOSE
     Route: 042
  2. MYCOPHENOLATE MOFETIL. [Suspect]
     Active Substance: MYCOPHENOLATE MOFETIL
     Indication: C3 GLOMERULOPATHY
     Dosage: UNK
     Route: 065
  3. PREDNISONE. [Suspect]
     Active Substance: PREDNISONE
     Indication: C3 GLOMERULOPATHY
     Dosage: UNK
     Route: 065

REACTIONS (7)
  - Pulmonary alveolar haemorrhage [Unknown]
  - Haemoptysis [Unknown]
  - Proteinuria [Unknown]
  - Haematuria [Unknown]
  - Respiratory disorder [Unknown]
  - Renal impairment [Unknown]
  - Product use in unapproved indication [Unknown]
